FAERS Safety Report 7894967-7 (Version None)
Quarter: 2011Q4

REPORT INFORMATION
  Report Type: 
  Country: None (occurrence: None)
  Receive Date: 20111106
  Receipt Date: 20110822
  Transmission Date: 20120403
  Serious: No
  Sender: FDA-Public Use
  Company Number: US-AMGEN-USASP2011042710

PATIENT
  Age: 70 Year
  Sex: Female

DRUGS (2)
  1. ENBREL [Suspect]
     Indication: RHEUMATOID ARTHRITIS
     Dosage: 50 MG, QWK
     Dates: start: 20000101
  2. CLOTRIMAZOLE [Concomitant]
     Dosage: 10 MG, UNK

REACTIONS (4)
  - ORAL CANDIDIASIS [None]
  - ESCHERICHIA URINARY TRACT INFECTION [None]
  - URINARY TRACT INFECTION STAPHYLOCOCCAL [None]
  - RHEUMATOID ARTHRITIS [None]
